FAERS Safety Report 16164720 (Version 3)
Quarter: 2019Q2

REPORT INFORMATION
  Report Type: Report from Study
  Country: IT (occurrence: IT)
  Receive Date: 20190405
  Receipt Date: 20190529
  Transmission Date: 20190711
  Serious: Yes (Hospitalization)
  Sender: FDA-Public Use
  Company Number: IT-TAKEDA-2019TUS019610

PATIENT
  Age: 74 Year
  Sex: Female

DRUGS (8)
  1. VORTIOXETINE. [Suspect]
     Active Substance: VORTIOXETINE
     Indication: DEPRESSION
     Dosage: 7 GTT DROPS, QD
     Route: 065
     Dates: start: 20190216, end: 20190312
  2. SAMYR                              /00882303/ [Suspect]
     Active Substance: ADEMETIONINE
     Indication: DEPRESSION
     Dosage: 400 MILLIGRAM, QD
     Route: 030
     Dates: start: 20190215, end: 20190312
  3. FLECAINIDE ACETATE. [Suspect]
     Active Substance: FLECAINIDE ACETATE
     Indication: ATRIAL FIBRILLATION
     Dosage: 100 MILLIGRAM, QD
     Route: 065
     Dates: start: 20190215, end: 20190312
  4. PRADAXA [Concomitant]
     Active Substance: DABIGATRAN ETEXILATE MESYLATE
     Indication: ATRIAL FIBRILLATION
     Dosage: 300 MILLIGRAM
     Route: 065
     Dates: start: 20100101
  5. ESOMEPRAZOLE SODIUM. [Concomitant]
     Active Substance: ESOMEPRAZOLE SODIUM
     Route: 065
  6. MODURETIC 5-50 [Suspect]
     Active Substance: AMILORIDE HYDROCHLORIDE\HYDROCHLOROTHIAZIDE
     Indication: HYPERTENSION
     Dosage: 2.5 MILLIGRAM, QD
     Route: 065
     Dates: start: 20100101, end: 20190312
  7. ESOMEPRAZOLE SODIUM. [Concomitant]
     Active Substance: ESOMEPRAZOLE SODIUM
     Indication: GASTROOESOPHAGEAL REFLUX DISEASE
     Dosage: 40 MILLIGRAM
     Route: 065
  8. SEQUACOR [Concomitant]
     Active Substance: BISOPROLOL
     Indication: ATRIAL FIBRILLATION
     Dosage: 10 MILLIGRAM
     Route: 065
     Dates: start: 20100101

REACTIONS (4)
  - Gait disturbance [Recovered/Resolved]
  - Disorientation [Recovered/Resolved]
  - Hyponatraemia [Recovered/Resolved]
  - Hypokalaemia [Recovered/Resolved]

NARRATIVE: CASE EVENT DATE: 20190220
